FAERS Safety Report 4862885-4 (Version None)
Quarter: 2005Q4

REPORT INFORMATION
  Report Type: 
  Country: None (occurrence: None)
  Receive Date: 20051221
  Receipt Date: 20051209
  Transmission Date: 20060501
  Serious: Yes (Death, Congenital Anomaly)
  Sender: FDA-Public Use
  Company Number: FR-SANOFI-SYNTHELABO-A02200503246

PATIENT

DRUGS (3)
  1. MYTELASE [Suspect]
     Indication: MYASTHENIC SYNDROME
     Dosage: UNK
     Route: 064
  2. PAROXETINE HCL [Concomitant]
     Dosage: UNK
     Route: 064
  3. VITAMIN B-12 [Concomitant]
     Dosage: UNK
     Route: 064

REACTIONS (5)
  - ABORTION INDUCED [None]
  - CONGENITAL LYMPHOEDEMA [None]
  - DRUG EXPOSURE DURING PREGNANCY [None]
  - FOETAL MALFORMATION [None]
  - SKULL MALFORMATION [None]
